FAERS Safety Report 23440719 (Version 1)
Quarter: 2024Q1

REPORT INFORMATION
  Report Type: Spontaneous
  Country: US (occurrence: US)
  Receive Date: 20240125
  Receipt Date: 20240125
  Transmission Date: 20240410
  Serious: Yes (Hospitalization)
  Sender: FDA-Public Use
  Company Number: US-UROGEN PHARMA LTD.-2024-UGN-000011

PATIENT

DRUGS (5)
  1. JELMYTO [Suspect]
     Active Substance: MITOMYCIN
     Indication: Transitional cell cancer of the renal pelvis and ureter
     Dosage: 10 MILLILITER, ONCE A WEEK (INSTILLATION)
     Dates: start: 20231214, end: 20231214
  2. JELMYTO [Suspect]
     Active Substance: MITOMYCIN
     Dosage: 10 MILLILITER, ONCE A WEEK (INSTILLATION)
     Dates: start: 2023, end: 2023
  3. JELMYTO [Suspect]
     Active Substance: MITOMYCIN
     Dosage: 10 MILLILITER, ONCE A WEEK (INSTILLATION)
     Dates: start: 2023, end: 2023
  4. JELMYTO [Suspect]
     Active Substance: MITOMYCIN
     Dosage: 10 MILLILITER, ONCE A WEEK (INSTILLATION)
     Dates: start: 2024, end: 2024
  5. JELMYTO [Suspect]
     Active Substance: MITOMYCIN
     Dosage: 10 MILLILITER, ONCE A WEEK (INSTILLATION)
     Dates: start: 20240111, end: 20240111

REACTIONS (3)
  - Heart rate increased [Unknown]
  - Vomiting [Unknown]
  - Nausea [Unknown]

NARRATIVE: CASE EVENT DATE: 20240101
